FAERS Safety Report 15506676 (Version 1)
Quarter: 2018Q4

REPORT INFORMATION
  Report Type: Report from Study
  Country: NL (occurrence: NL)
  Receive Date: 20181016
  Receipt Date: 20181016
  Transmission Date: 20190205
  Serious: Yes (Death)
  Sender: FDA-Public Use
  Company Number: NL-IPSEN BIOPHARMACEUTICALS, INC.-2018-15543

PATIENT
  Age: 78 Year
  Sex: Male

DRUGS (6)
  1. AMLODEPINE [Concomitant]
  2. PERINDOPRIL [Concomitant]
     Active Substance: PERINDOPRIL
  3. PAMORELIN 11.25 MG [Suspect]
     Active Substance: TRIPTORELIN PAMOATE
     Indication: PRODUCT USED FOR UNKNOWN INDICATION
     Route: 058
     Dates: start: 201803, end: 2018
  4. DENOSUMAB [Concomitant]
     Active Substance: DENOSUMAB
     Dosage: INJ FLUID 70MG/ML FL 1,7ML
  5. FENPROCOUMON [Concomitant]
     Active Substance: PHENPROCOUMON
  6. AMLODEPINE [Concomitant]

REACTIONS (1)
  - Death [Fatal]

NARRATIVE: CASE EVENT DATE: 20180803
